FAERS Safety Report 12874708 (Version 15)
Quarter: 2017Q3

REPORT INFORMATION
  Report Type: Report from Study
  Country: BR (occurrence: BR)
  Receive Date: 20161021
  Receipt Date: 20170920
  Transmission Date: 20171127
  Serious: Yes (Hospitalization, Other)
  Sender: FDA-Public Use
  Company Number: BR-JNJFOC-20161011440

PATIENT
  Age: 79 Year
  Sex: Male
  Weight: 65 kg

DRUGS (19)
  1. IMBRUVICA [Suspect]
     Active Substance: IBRUTINIB
     Indication: CHRONIC LYMPHOCYTIC LEUKAEMIA
     Route: 048
  2. IMBRUVICA [Suspect]
     Active Substance: IBRUTINIB
     Indication: CHRONIC LYMPHOCYTIC LEUKAEMIA
     Route: 048
     Dates: end: 20170501
  3. OXACILINA [Suspect]
     Active Substance: OXACILLIN SODIUM
     Indication: PRODUCT USED FOR UNKNOWN INDICATION
     Route: 042
  4. IMBRUVICA [Suspect]
     Active Substance: IBRUTINIB
     Indication: CHRONIC LYMPHOCYTIC LEUKAEMIA
     Route: 048
     Dates: start: 201608
  5. IMBRUVICA [Suspect]
     Active Substance: IBRUTINIB
     Indication: CHRONIC LYMPHOCYTIC LEUKAEMIA
     Route: 048
     Dates: start: 20160215, end: 2016
  6. TENSALIV [Concomitant]
     Active Substance: AMLODIPINE BESYLATE
     Route: 065
  7. TIORFAN [Concomitant]
     Active Substance: RACECADOTRIL
  8. IMBRUVICA [Suspect]
     Active Substance: IBRUTINIB
     Indication: B-CELL SMALL LYMPHOCYTIC LYMPHOMA
     Route: 048
     Dates: end: 20170501
  9. SELOZOK [Concomitant]
     Active Substance: METOPROLOL SUCCINATE
     Route: 065
  10. IMBRUVICA [Suspect]
     Active Substance: IBRUTINIB
     Indication: B-CELL SMALL LYMPHOCYTIC LYMPHOMA
     Route: 048
  11. IMBRUVICA [Suspect]
     Active Substance: IBRUTINIB
     Indication: B-CELL SMALL LYMPHOCYTIC LYMPHOMA
     Route: 048
     Dates: start: 201608
  12. IMBRUVICA [Suspect]
     Active Substance: IBRUTINIB
     Indication: B-CELL SMALL LYMPHOCYTIC LYMPHOMA
     Route: 048
  13. IMBRUVICA [Suspect]
     Active Substance: IBRUTINIB
     Indication: CHRONIC LYMPHOCYTIC LEUKAEMIA
     Route: 048
  14. NEXIUM [Concomitant]
     Active Substance: ESOMEPRAZOLE MAGNESIUM
     Route: 065
  15. TENSALIV [Concomitant]
     Active Substance: AMLODIPINE BESYLATE
     Route: 065
  16. IMOSEC [Suspect]
     Active Substance: LOPERAMIDE
     Indication: DIARRHOEA
     Dosage: NORMALLY AFTER 5?/6? DAY
     Route: 065
  17. GARDENAL [Concomitant]
     Active Substance: PHENOBARBITAL
     Route: 065
  18. TEGRETOL [Concomitant]
     Active Substance: CARBAMAZEPINE
     Route: 065
  19. IMBRUVICA [Suspect]
     Active Substance: IBRUTINIB
     Indication: B-CELL SMALL LYMPHOCYTIC LYMPHOMA
     Route: 048
     Dates: start: 20160215, end: 2016

REACTIONS (13)
  - Diverticulitis [Unknown]
  - Depressed mood [Unknown]
  - Diarrhoea [Not Recovered/Not Resolved]
  - Infection [Unknown]
  - Apathy [Unknown]
  - Drug ineffective [Unknown]
  - Weight decreased [Not Recovered/Not Resolved]
  - Depression [Unknown]
  - Constipation [Unknown]
  - Erysipelas [Unknown]
  - Influenza [Recovering/Resolving]
  - Dysentery [Not Recovered/Not Resolved]
  - Physical disability [Unknown]

NARRATIVE: CASE EVENT DATE: 201608
